FAERS Safety Report 4737737-0 (Version None)
Quarter: 2005Q3

REPORT INFORMATION
  Report Type: 
  Country: None (occurrence: None)
  Receive Date: 20050802
  Receipt Date: 20050718
  Transmission Date: 20060218
  Serious: Yes (Other)
  Sender: FDA-Public Use
  Company Number: L05-IND-02379-01

PATIENT
  Age: 32 Year
  Sex: Female

DRUGS (5)
  1. CARBAMAZEPINE [Suspect]
     Indication: CONVULSION
     Dosage: 600 MG QD
     Route: 048
  2. CARBAMAZEPINE [Suspect]
     Indication: CONVULSION
     Dosage: 1000 MG QD
     Route: 048
  3. CARBAMAZEPINE [Suspect]
     Indication: CONVULSION
     Dosage: 800 MG QD
     Route: 048
  4. CARBAMAZEPINE [Suspect]
     Indication: CONVULSION
     Dosage: 600 MG QD
     Route: 048
  5. CARBAMAZEPINE [Suspect]
     Indication: CONVULSION
     Dosage: 500 MG QD
     Route: 048

REACTIONS (3)
  - SINOATRIAL BLOCK [None]
  - STATUS EPILEPTICUS [None]
  - SYNCOPE [None]
